FAERS Safety Report 9384305 (Version 2)
Quarter: 2013Q3

REPORT INFORMATION
  Report Type: Spontaneous
  Country: IT (occurrence: IT)
  Receive Date: 20130705
  Receipt Date: 20130809
  Transmission Date: 20140515
  Serious: Yes (Other)
  Sender: FDA-Public Use
  Company Number: PHHY2013IT068038

PATIENT
  Sex: Male

DRUGS (2)
  1. ZOMETA [Suspect]
     Indication: PLASMA CELL MYELOMA
     Dosage: 4 MG, MONTHLY
     Dates: start: 20110701, end: 20120201
  2. AREDIA [Suspect]
     Indication: PLASMA CELL MYELOMA
     Dosage: 90 MG, MONTHLY
     Route: 042
     Dates: start: 20100201, end: 20100901

REACTIONS (1)
  - Osteonecrosis of jaw [Not Recovered/Not Resolved]
